FAERS Safety Report 9537705 (Version 2)
Quarter: 2013Q4

REPORT INFORMATION
  Report Type: Spontaneous
  Country: JP (occurrence: JP)
  Receive Date: 20130919
  Receipt Date: 20131025
  Transmission Date: 20140711
  Serious: Yes (Other)
  Sender: FDA-Public Use
  Company Number: JP-B.I. PHARMACEUTICALS,INC./RIDGEFIELD-2013-BI-29031NB

PATIENT
  Age: 68 Year
  Sex: Male
  Weight: 63 kg

DRUGS (5)
  1. TRAJENTA [Suspect]
     Indication: TYPE 2 DIABETES MELLITUS
     Dosage: 5 MG
     Route: 048
     Dates: start: 20130823, end: 20130902
  2. SOL-MELCORT [Suspect]
     Indication: KIDNEY TRANSPLANT REJECTION
     Dosage: 500 MG
     Route: 042
     Dates: start: 20130828, end: 20130830
  3. INSULIN [Concomitant]
     Route: 042
     Dates: start: 20130823
  4. AGENTS AFFECTING METABOLISM,N.E.C [Concomitant]
     Dates: start: 201202
  5. ADRENAL HORMONE PREPARATIONS [Concomitant]
     Dates: start: 201202

REACTIONS (4)
  - Pancreatitis acute [Recovered/Resolved]
  - Kidney transplant rejection [Unknown]
  - Abdominal pain [Unknown]
  - Renal impairment [Unknown]
